FAERS Safety Report 7816027-3 (Version None)
Quarter: 2011Q4

REPORT INFORMATION
  Report Type: 
  Country: None (occurrence: None)
  Receive Date: 20111014
  Receipt Date: 20110921
  Transmission Date: 20120403
  Serious: Yes (Death)
  Sender: FDA-Public Use
  Company Number: JP-ROCHE-1000119

PATIENT
  Age: 62 Year
  Sex: Male

DRUGS (3)
  1. DAUNORUBICIN HCL [Concomitant]
     Route: 042
  2. VESANOID [Suspect]
     Indication: ACUTE PROMYELOCYTIC LEUKAEMIA
     Route: 048
  3. CYTARABINE [Concomitant]

REACTIONS (4)
  - PULMONARY HAEMORRHAGE [None]
  - GASTRIC HAEMORRHAGE [None]
  - RETINOIC ACID SYNDROME [None]
  - DISSEMINATED INTRAVASCULAR COAGULATION [None]
